FAERS Safety Report 26046575 (Version 1)
Quarter: 2025Q4

REPORT INFORMATION
  Report Type: Spontaneous
  Country: CA (occurrence: CA)
  Receive Date: 20251114
  Receipt Date: 20251114
  Transmission Date: 20260117
  Serious: Yes (Other)
  Sender: ASTELLAS
  Company Number: CA-PFIZER INC-PV202500132518

PATIENT
  Age: 78 Year
  Sex: Female

DRUGS (2)
  1. PADCEV [Suspect]
     Active Substance: ENFORTUMAB VEDOTIN-EJFV
     Indication: Product used for unknown indication
     Dosage: 1.25 MG/KG ON DAY 1 AND DAY 8 OF 21 DAY CYCLE?POWDER FOR SOLUTION FOR INFUSION(200)
     Route: 042
     Dates: start: 20250314
  2. KEYTRUDA [Concomitant]
     Active Substance: PEMBROLIZUMAB
     Indication: Product used for unknown indication
     Dosage: UNK
     Route: 065

REACTIONS (1)
  - Malignant neoplasm progression [Unknown]

NARRATIVE: CASE EVENT DATE: 20250101
